FAERS Safety Report 6323528-6 (Version None)
Quarter: 2009Q3

REPORT INFORMATION
  Report Type: 
  Country: None (occurrence: None)
  Receive Date: 20090824
  Receipt Date: 20090611
  Transmission Date: 20100115
  Serious: No
  Sender: FDA-Public Use
  Company Number: US-ABBOTT-09P-163-0579547-00

PATIENT
  Sex: Male
  Weight: 74.91 kg

DRUGS (7)
  1. NIASPAN [Suspect]
     Indication: BLOOD CHOLESTEROL INCREASED
     Dates: start: 20090601
  2. LORAZEPAM [Concomitant]
     Indication: GASTROOESOPHAGEAL REFLUX DISEASE
  3. CRESTOR [Concomitant]
     Indication: DRUG USE FOR UNKNOWN INDICATION
  4. LEVOTHYROXINE SODIUM [Concomitant]
     Indication: DRUG USE FOR UNKNOWN INDICATION
  5. AVODART [Concomitant]
     Indication: DRUG USE FOR UNKNOWN INDICATION
  6. MOBIC [Concomitant]
     Indication: DRUG USE FOR UNKNOWN INDICATION
  7. TYLENOL (CAPLET) [Concomitant]
     Indication: DRUG USE FOR UNKNOWN INDICATION

REACTIONS (2)
  - ERYTHEMA [None]
  - PARAESTHESIA [None]
